FAERS Safety Report 16014565 (Version 1)
Quarter: 2019Q1

REPORT INFORMATION
  Report Type: Spontaneous
  Country: ES (occurrence: ES)
  Receive Date: 20190227
  Receipt Date: 20190227
  Transmission Date: 20190418
  Serious: Yes (Life-Threatening)
  Sender: FDA-Public Use
  Company Number: ES-MYLANLABS-2019M1018509

PATIENT
  Age: 19 Year
  Sex: Male

DRUGS (2)
  1. LAMOTRIGINE. [Suspect]
     Active Substance: LAMOTRIGINE
     Indication: EPILEPSY
     Dosage: 25 MILLIGRAM, BID
     Route: 048
     Dates: start: 20180718, end: 20180803
  2. ESLICARBAZEPINA [Concomitant]
     Active Substance: ESLICARBAZEPINE
     Dosage: UNK

REACTIONS (2)
  - Somnambulism [Recovering/Resolving]
  - Aggression [Recovering/Resolving]

NARRATIVE: CASE EVENT DATE: 20180729
